FAERS Safety Report 6462026-6 (Version None)
Quarter: 2009Q4

REPORT INFORMATION
  Report Type: 
  Country: None (occurrence: None)
  Receive Date: 20091123
  Receipt Date: 20091111
  Transmission Date: 20100525
  Serious: Yes (Other)
  Sender: FDA-Public Use
  Company Number: 1-20594478

PATIENT
  Age: 56 Year
  Sex: Female
  Weight: 61.2356 kg

DRUGS (4)
  1. SOLODYN [Suspect]
     Indication: ACNE CYSTIC
     Dosage: 65 MG, ONE TABLET, ONCE DAILY, ORAL
     Route: 048
     Dates: start: 20090901, end: 20091026
  2. UNSPECIFIED MULTIVITAMIN [Concomitant]
  3. AMPICILLIN [Concomitant]
  4. DIFLUCAN [Concomitant]

REACTIONS (1)
  - BLADDER CANCER [None]
